FAERS Safety Report 14300341 (Version 2)
Quarter: 2018Q1

REPORT INFORMATION
  Report Type: Spontaneous
  Country: ES (occurrence: ES)
  Receive Date: 20171219
  Receipt Date: 20180216
  Transmission Date: 20180509
  Serious: Yes (Other)
  Sender: FDA-Public Use
  Company Number: ES-BAUSCH-BL-2017-034324

PATIENT
  Age: 56 Year
  Sex: Male

DRUGS (2)
  1. DILTIAZEM HYDROCHLORIDE. [Suspect]
     Active Substance: DILTIAZEM HYDROCHLORIDE
     Indication: PRODUCT USED FOR UNKNOWN INDICATION
     Route: 065
  2. NIMODIPINE. [Suspect]
     Active Substance: NIMODIPINE
     Indication: REVERSIBLE CEREBRAL VASOCONSTRICTION SYNDROME
     Route: 065

REACTIONS (4)
  - Posterior reversible encephalopathy syndrome [Unknown]
  - Off label use [Unknown]
  - Reversible cerebral vasoconstriction syndrome [Unknown]
  - Product use in unapproved indication [Unknown]
